FAERS Safety Report 4372144-4 (Version None)
Quarter: 2004Q2

REPORT INFORMATION
  Report Type: 
  Country: None (occurrence: None)
  Receive Date: 20040607
  Receipt Date: 20040526
  Transmission Date: 20050107
  Serious: Yes (Life-Threatening, Hospitalization)
  Sender: FDA-Public Use
  Company Number: US-MERCK-0405USA02099

PATIENT
  Age: 59 Year
  Sex: Male

DRUGS (7)
  1. ASPIRIN [Concomitant]
     Route: 048
  2. LIPITOR [Concomitant]
     Route: 065
  3. COREG [Concomitant]
     Route: 048
  4. PLAVIX [Concomitant]
     Route: 048
  5. VIOXX [Suspect]
     Indication: GOUT
     Route: 048
     Dates: start: 20040513, end: 20040518
  6. VIOXX [Suspect]
     Indication: PAIN
     Route: 048
     Dates: start: 20040513, end: 20040518
  7. DIOVAN [Concomitant]
     Route: 048

REACTIONS (3)
  - ATRIAL FIBRILLATION [None]
  - CARDIAC FAILURE CONGESTIVE [None]
  - PULMONARY OEDEMA [None]
